FAERS Safety Report 6190089-4 (Version None)
Quarter: 2009Q2

REPORT INFORMATION
  Report Type: 
  Country: None (occurrence: None)
  Receive Date: 20090513
  Receipt Date: 20090513
  Transmission Date: 20091009
  Serious: Yes (Hospitalization)
  Sender: FDA-Public Use
  Company Number: None

PATIENT
  Age: 53 Year
  Sex: Female
  Weight: 56 kg

DRUGS (12)
  1. AVASTIN [Suspect]
     Indication: OVARIAN CANCER
     Dosage: IV   (DATES OF USE: EARLIER THIS YEAR)
     Route: 042
  2. BYSTOLIC [Concomitant]
  3. CLONIDINE [Concomitant]
  4. DECADRON [Concomitant]
  5. FOLIC ACID [Concomitant]
  6. LEXAPRO [Concomitant]
  7. LISINOPRIL [Concomitant]
  8. MIRALAX [Concomitant]
  9. NEXIUM [Concomitant]
  10. NORVASC [Concomitant]
  11. REGLAN [Concomitant]
  12. TRIAMTERENE AND HYDROCHLOROTHIAZIDE [Concomitant]

REACTIONS (5)
  - CONVULSION [None]
  - HYPERTENSIVE ENCEPHALOPATHY [None]
  - MENTAL STATUS CHANGES [None]
  - NAUSEA [None]
  - VOMITING [None]
